FAERS Safety Report 5957573-7 (Version None)
Quarter: 2008Q4

REPORT INFORMATION
  Report Type: 
  Country: None (occurrence: None)
  Receive Date: 20081117
  Receipt Date: 20081117
  Transmission Date: 20090506
  Serious: No
  Sender: FDA-Public Use
  Company Number: None

PATIENT
  Sex: Female
  Weight: 53.0709 kg

DRUGS (3)
  1. CIPRODEX [Suspect]
     Indication: OTITIS MEDIA
     Dosage: 4 DROPS ONCE A DAY IN EAR
     Dates: start: 20081027
  2. CIPRODEX [Suspect]
     Indication: OTITIS MEDIA
     Dosage: 4 DROPS ONCE A DAY IN EAR
     Dates: start: 20081028
  3. CIPRODEX [Suspect]
     Indication: OTITIS MEDIA
     Dosage: 4 DROPS ONCE A DAY IN EAR
     Dates: start: 20081029

REACTIONS (3)
  - BURNING SENSATION [None]
  - EAR DISORDER [None]
  - PAIN [None]
